FAERS Safety Report 19012947 (Version 1)
Quarter: 2021Q1

REPORT INFORMATION
  Report Type: Report from Study
  Country: IN (occurrence: IN)
  Receive Date: 20210315
  Receipt Date: 20210315
  Transmission Date: 20210420
  Serious: Yes (Death)
  Sender: FDA-Public Use
  Company Number: IN-PFIZER INC-2021262017

PATIENT

DRUGS (10)
  1. VINCRISTINE [Suspect]
     Active Substance: VINCRISTINE
     Indication: NEUROBLASTOMA
     Dosage: UNK, CYCLIC (EACH CYCLE WAS ADMINISTERED AT 10 DAYS INTERVAL)
     Route: 042
  2. CISPLATIN. [Suspect]
     Active Substance: CISPLATIN
     Indication: NEUROBLASTOMA
     Dosage: UNK, CYCLIC (EACH CYCLE WAS ADMINISTERED AT 10 DAYS INTERVAL)
  3. ETOPOSIDE. [Suspect]
     Active Substance: ETOPOSIDE
     Indication: NEUROBLASTOMA
     Dosage: UNK, CYCLIC (EACH CYCLE WAS ADMINISTERED AT 10 DAYS INTERVAL)
  4. ISOTRETINOIN. [Suspect]
     Active Substance: ISOTRETINOIN
     Indication: NEUROBLASTOMA
     Dosage: UNK, CYCLIC (SIX, 2?WEEKLY CYCLES)
  5. DOXORUBICIN HCL [Suspect]
     Active Substance: DOXORUBICIN HYDROCHLORIDE
     Indication: NEUROBLASTOMA
     Dosage: UNK, CYCLIC (4 H INFUSION ON DAYS 5 AND 6)
  6. CARBOPLATIN. [Suspect]
     Active Substance: CARBOPLATIN
     Indication: NEUROBLASTOMA
     Dosage: UNK, CYCLIC (EACH CYCLE WAS ADMINISTERED AT 10 DAYS INTERVAL)
  7. VINCRISTINE [Suspect]
     Active Substance: VINCRISTINE
     Dosage: UNK, CYCLIC (AS AN INTRAVENOUS PUSH ON DAYS 5 AND 6)
     Route: 042
  8. CYCLOPHOSPHAMIDE. [Suspect]
     Active Substance: CYCLOPHOSPHAMIDE
     Indication: NEUROBLASTOMA
     Dosage: UNK, CYCLIC (EACH CYCLE WAS ADMINISTERED AT 10 DAYS INTERVAL)
  9. TOPOTECAN [Suspect]
     Active Substance: TOPOTECAN HYDROCHLORIDE
     Indication: NEUROBLASTOMA
     Dosage: UNK, CYCLIC
  10. G?CSF [Concomitant]
     Active Substance: GRANULOCYTE COLONY-STIMULATING FACTOR NOS
     Indication: PROPHYLAXIS

REACTIONS (1)
  - Death [Fatal]
